FAERS Safety Report 5758234-X (Version None)
Quarter: 2008Q2

REPORT INFORMATION
  Report Type: 
  Country: None (occurrence: None)
  Receive Date: 20080604
  Receipt Date: 20080526
  Transmission Date: 20081010
  Serious: Yes (Death, Hospitalization)
  Sender: FDA-Public Use
  Company Number: KR-TEVA-172073ISR

PATIENT
  Age: 65 Year
  Sex: Female

DRUGS (4)
  1. METHOTREXATE [Suspect]
  2. TACROLIMUS [Suspect]
  3. MERCAPTOPURINE [Suspect]
  4. MYCOPHENOLATE MOFETIL [Concomitant]

REACTIONS (1)
  - ACUTE MYELOID LEUKAEMIA [None]
